FAERS Safety Report 12068697 (Version 1)
Quarter: 2016Q1

REPORT INFORMATION
  Report Type: Spontaneous
  Country: JP (occurrence: JP)
  Receive Date: 20160211
  Receipt Date: 20160211
  Transmission Date: 20160526
  Serious: Yes (Other)
  Sender: FDA-Public Use
  Company Number: JP-ROCHE-1706423

PATIENT
  Age: 5 Year
  Sex: Male
  Weight: 20 kg

DRUGS (6)
  1. TAMIFLU [Suspect]
     Active Substance: OSELTAMIVIR PHOSPHATE
     Indication: INFLUENZA
     Dosage: DOSAGE IS UNCERTAIN.
     Route: 048
     Dates: start: 20160128, end: 20160128
  2. MUCOSAL (JAPAN) [Concomitant]
     Route: 048
     Dates: start: 20160128, end: 20160201
  3. ASVERIN (JAPAN) [Concomitant]
     Route: 048
     Dates: start: 20160128, end: 20160201
  4. MUCODYNE [Concomitant]
     Active Substance: CARBOCYSTEINE
     Route: 048
     Dates: start: 20160128, end: 20160201
  5. CEFZON (JAPAN) [Concomitant]
     Indication: STREPTOCOCCAL INFECTION
     Route: 048
     Dates: start: 20160128, end: 20160201
  6. MIYA-BM [Concomitant]
     Active Substance: CLOSTRIDIUM BUTYRICUM SPORES STRAIN M-55
     Route: 048
     Dates: start: 20160128, end: 20160201

REACTIONS (1)
  - Abnormal behaviour [Recovered/Resolved]

NARRATIVE: CASE EVENT DATE: 20160128
